FAERS Safety Report 24265818 (Version 1)
Quarter: 2024Q3

REPORT INFORMATION
  Report Type: Spontaneous
  Country: US (occurrence: None)
  Receive Date: 20240830
  Receipt Date: 20240830
  Transmission Date: 20241017
  Serious: No
  Sender: AXSOME THERAPEUTICS
  Company Number: US-ARIS GLOBAL-AXS202406-000815

PATIENT
  Sex: Female

DRUGS (4)
  1. AUVELITY [Suspect]
     Active Substance: BUPROPION HYDROCHLORIDE\DEXTROMETHORPHAN HYDROBROMIDE
     Indication: Product used for unknown indication
     Dosage: UNK
     Route: 065
     Dates: start: 202404
  2. WELLBUTRIN [Concomitant]
     Active Substance: BUPROPION HYDROCHLORIDE
     Indication: Depression
     Dosage: FROM 4-7 YEARS
     Route: 065
  3. TRINTELLIX [Concomitant]
     Active Substance: VORTIOXETINE HYDROBROMIDE
     Indication: Depression
     Dosage: FROM 4-7 YEARS
     Route: 065
  4. AMPHETAMINE [Concomitant]
     Active Substance: AMPHETAMINE
     Indication: Attention deficit hyperactivity disorder
     Dosage: FROM 6-8 MONTHS
     Route: 065

REACTIONS (1)
  - Loss of therapeutic response [Unknown]

NARRATIVE: CASE EVENT DATE: 20240601
